FAERS Safety Report 4860906-6 (Version None)
Quarter: 2005Q4

REPORT INFORMATION
  Report Type: 
  Country: None (occurrence: None)
  Receive Date: 20051220
  Receipt Date: 20051208
  Transmission Date: 20060501
  Serious: Yes (Hospitalization)
  Sender: FDA-Public Use
  Company Number: PHEH2005US13534

PATIENT
  Sex: Female

DRUGS (2)
  1. AREDIA [Suspect]
  2. FEMARA [Suspect]
     Dosage: 2.5 MG, QD
     Dates: end: 20051013

REACTIONS (4)
  - BLOOD CREATININE INCREASED [None]
  - NEPHROTIC SYNDROME [None]
  - OEDEMA PERIPHERAL [None]
  - PROTEINURIA [None]
